FAERS Safety Report 9434867 (Version 1)
Quarter: 2013Q3

REPORT INFORMATION
  Report Type: Spontaneous
  Country: US (occurrence: US)
  Receive Date: 20130801
  Receipt Date: 20130801
  Transmission Date: 20140515
  Serious: No
  Sender: FDA-Public Use
  Company Number: US-009507513-1307USA014693

PATIENT
  Sex: Male
  Weight: 90.7 kg

DRUGS (6)
  1. PEGINTRON [Suspect]
     Dosage: 150MCG/0.5ML
  2. RIBAVIRIN [Suspect]
     Dosage: UNK
     Route: 048
  3. VITAMINS (UNSPECIFIED) [Concomitant]
     Route: 048
  4. CYANOCOBALAMIN [Concomitant]
     Route: 048
  5. TYLENOL [Concomitant]
     Route: 048
  6. PRILOSEC [Concomitant]
     Route: 048

REACTIONS (2)
  - Drug ineffective [Unknown]
  - Hepatitis C RNA increased [Unknown]
